FAERS Safety Report 17827584 (Version 1)
Quarter: 2020Q2

REPORT INFORMATION
  Report Type: Spontaneous
  Country: CN (occurrence: CN)
  Receive Date: 20200527
  Receipt Date: 20200527
  Transmission Date: 20200714
  Serious: Yes (Hospitalization)
  Sender: FDA-Public Use
  Company Number: CN-EMD SERONO-9164504

PATIENT
  Age: 75 Year
  Sex: Female
  Weight: 65 kg

DRUGS (11)
  1. MOSAPRIDE CITRATE [Concomitant]
     Active Substance: MOSAPRIDE CITRATE
     Indication: DYSPEPSIA
     Route: 048
     Dates: start: 20200507, end: 20200509
  2. ACARBOSE. [Concomitant]
     Active Substance: ACARBOSE
     Indication: HYPERTENSION
  3. BACILLUS SUBTILIS W/ENTEROCOCCUS FAECALIS [Concomitant]
     Indication: DIARRHOEA
     Dosage: ENTERIC-COATED CAPSULES 0.5 (UNSPECIFIED UNIT)
     Route: 048
     Dates: start: 20200507, end: 20200513
  4. FELODIPINE. [Concomitant]
     Active Substance: FELODIPINE
     Indication: HYPERGLYCAEMIA
  5. PERINDOPRIL [Concomitant]
     Active Substance: PERINDOPRIL
     Indication: HYPERTENSION
     Route: 048
  6. GLICLAZIDE [Concomitant]
     Active Substance: GLICLAZIDE
     Indication: HYPERGLYCAEMIA
     Dosage: SUSTAINED-RELEASE TABLETS
     Route: 048
  7. PERINDOPRIL [Concomitant]
     Active Substance: PERINDOPRIL
     Indication: HYPERGLYCAEMIA
  8. GLICLAZIDE [Concomitant]
     Active Substance: GLICLAZIDE
     Indication: HYPERTENSION
  9. ACARBOSE. [Concomitant]
     Active Substance: ACARBOSE
     Indication: HYPERGLYCAEMIA
     Route: 048
  10. GLUCOPHAGE [Suspect]
     Active Substance: METFORMIN HYDROCHLORIDE
     Indication: HYPERGLYCAEMIA
     Route: 048
     Dates: start: 20200507, end: 20200511
  11. FELODIPINE. [Concomitant]
     Active Substance: FELODIPINE
     Indication: HYPERTENSION
     Dosage: SUSTAINED RELEASE TABLETS
     Route: 048

REACTIONS (2)
  - Hypokalaemia [Recovering/Resolving]
  - Diarrhoea [Recovered/Resolved]

NARRATIVE: CASE EVENT DATE: 20200508
